FAERS Safety Report 5796515-4 (Version None)
Quarter: 2008Q3

REPORT INFORMATION
  Report Type: 
  Country: None (occurrence: None)
  Receive Date: 20080701
  Receipt Date: 20080625
  Transmission Date: 20090109
  Serious: Yes (Other)
  Sender: FDA-Public Use
  Company Number: B0526453A

PATIENT
  Age: 13 Year
  Sex: Female

DRUGS (2)
  1. VENTOLIN [Suspect]
     Indication: ASTHMA
     Dosage: 200MCG SEE DOSAGE TEXT
     Route: 055
  2. BECLOMETHASONE DIPROPIONATE [Concomitant]
     Route: 055

REACTIONS (2)
  - AGGRESSION [None]
  - INTENTIONAL OVERDOSE [None]
